FAERS Safety Report 16745123 (Version 1)
Quarter: 2019Q3

REPORT INFORMATION
  Report Type: Spontaneous
  Country: US (occurrence: US)
  Receive Date: 20190709
  Receipt Date: 20190709
  Transmission Date: 20191005
  Serious: No
  Sender: FDA-Public Use
  Company Number: None

PATIENT
  Age: 71 Year
  Sex: Male

DRUGS (4)
  1. LUPRON DEPOT [Suspect]
     Active Substance: LEUPROLIDE ACETATE
  2. PREDNISONE. [Concomitant]
     Active Substance: PREDNISONE
  3. TRAMADOL. [Concomitant]
     Active Substance: TRAMADOL
  4. ABIRATERONE 250MG TAB [Suspect]
     Active Substance: ABIRATERONE
     Dates: start: 20190213

REACTIONS (1)
  - Dyspnoea [None]

NARRATIVE: CASE EVENT DATE: 20190709
